FAERS Safety Report 11187499 (Version 2)
Quarter: 2015Q3

REPORT INFORMATION
  Report Type: Spontaneous
  Country: US (occurrence: US)
  Receive Date: 20150615
  Receipt Date: 20150721
  Transmission Date: 20151125
  Serious: Yes (Other)
  Sender: FDA-Public Use
  Company Number: US-JNJFOC-20150511655

PATIENT
  Age: 57 Year
  Sex: Male
  Weight: 109.32 kg

DRUGS (10)
  1. SOTALOL HCL [Concomitant]
     Active Substance: SOTALOL
     Route: 048
     Dates: start: 200008
  2. XARELTO [Suspect]
     Active Substance: RIVAROXABAN
     Indication: CEREBROVASCULAR ACCIDENT PROPHYLAXIS
     Route: 048
     Dates: start: 20130508, end: 201309
  3. XARELTO [Suspect]
     Active Substance: RIVAROXABAN
     Indication: ATRIAL FIBRILLATION
     Route: 048
     Dates: start: 20130508, end: 201309
  4. NITROGLYCERIN. [Concomitant]
     Active Substance: NITROGLYCERIN
     Indication: MYOCARDIAL INFARCTION
     Route: 060
  5. ASPIRIN. [Suspect]
     Active Substance: ASPIRIN
     Indication: PRODUCT USED FOR UNKNOWN INDICATION
     Route: 048
  6. NIASPAN [Concomitant]
     Active Substance: NIACIN
     Route: 048
     Dates: start: 200008
  7. COREG [Concomitant]
     Active Substance: CARVEDILOL
     Route: 048
  8. CRESTOR [Concomitant]
     Active Substance: ROSUVASTATIN CALCIUM
     Route: 048
     Dates: start: 200008
  9. DIOVAN [Concomitant]
     Active Substance: VALSARTAN
     Route: 048
  10. PROTONIX [Concomitant]
     Active Substance: PANTOPRAZOLE SODIUM
     Route: 048

REACTIONS (6)
  - Melaena [Recovered/Resolved]
  - Constipation [Unknown]
  - Urine abnormality [Unknown]
  - Dyspepsia [Unknown]
  - Fatigue [Unknown]
  - Internal haemorrhage [Recovered/Resolved]

NARRATIVE: CASE EVENT DATE: 201305
